FAERS Safety Report 15639084 (Version 1)
Quarter: 2018Q4

REPORT INFORMATION
  Report Type: Spontaneous
  Country: US (occurrence: US)
  Receive Date: 20181120
  Receipt Date: 20181120
  Transmission Date: 20190205
  Serious: No
  Sender: FDA-Public Use
  Company Number: US-JNJFOC-20180217036

PATIENT
  Age: 69 Year
  Sex: Male

DRUGS (22)
  1. IMBRUVICA [Suspect]
     Active Substance: IBRUTINIB
     Indication: PRODUCT USED FOR UNKNOWN INDICATION
     Route: 048
     Dates: start: 20171005, end: 201801
  2. VIGAMOX [Concomitant]
     Active Substance: MOXIFLOXACIN HYDROCHLORIDE
  3. PEPCID [Concomitant]
     Active Substance: FAMOTIDINE
  4. VALTREX [Concomitant]
     Active Substance: VALACYCLOVIR HYDROCHLORIDE
  5. FLOVENT [Concomitant]
     Active Substance: FLUTICASONE PROPIONATE
  6. PROSCAR [Concomitant]
     Active Substance: FINASTERIDE
  7. ZITHROMAX [Concomitant]
     Active Substance: AZITHROMYCIN DIHYDRATE
  8. FOLIC ACID. [Concomitant]
     Active Substance: FOLIC ACID
  9. LEVEMIR [Concomitant]
     Active Substance: INSULIN DETEMIR
  10. VITAMIN D2 [Concomitant]
     Active Substance: ERGOCALCIFEROL
  11. PREDNISONE. [Concomitant]
     Active Substance: PREDNISONE
  12. DITROPAN [Concomitant]
     Active Substance: OXYBUTYNIN CHLORIDE
  13. ACULAR [Concomitant]
     Active Substance: KETOROLAC TROMETHAMINE
  14. BACTRIM [Concomitant]
     Active Substance: SULFAMETHOXAZOLE\TRIMETHOPRIM
  15. BARACLUDE [Concomitant]
     Active Substance: ENTECAVIR
  16. NOXAFIL [Concomitant]
     Active Substance: POSACONAZOLE
  17. SINGULAIR [Concomitant]
     Active Substance: MONTELUKAST SODIUM
  18. LOTEMAX [Concomitant]
     Active Substance: LOTEPREDNOL ETABONATE
  19. PREDNISOLONE. [Concomitant]
     Active Substance: PREDNISOLONE
  20. ARTIFICIAL TEARS [Concomitant]
     Active Substance: GLYCERIN\HYPROMELLOSES\POLYETHYLENE GLYCOL 400
  21. LISINOPRIL. [Concomitant]
     Active Substance: LISINOPRIL
  22. CYANOCOBALAMIN. [Concomitant]
     Active Substance: CYANOCOBALAMIN

REACTIONS (6)
  - Contusion [Unknown]
  - Off label use [Unknown]
  - Epistaxis [Unknown]
  - Thrombosis [Unknown]
  - Incorrect dose administered [Unknown]
  - Headache [Unknown]

NARRATIVE: CASE EVENT DATE: 20171005
